FAERS Safety Report 8837391 (Version 1)
Quarter: 2012Q4

REPORT INFORMATION
  Report Type: 
  Country: US (occurrence: US)
  Receive Date: 20121012
  Receipt Date: 20121012
  Transmission Date: 20130627
  Serious: No
  Sender: FDA-Public Use
  Company Number: US-PFIZER INC-2012251007

PATIENT
  Age: 68 Year
  Sex: Male
  Weight: 89.8 kg

DRUGS (5)
  1. LYRICA [Suspect]
     Indication: DIABETIC NEUROPATHY
     Dosage: 75 mg, 2x/day
     Route: 048
     Dates: start: 201201, end: 201202
  2. LYRICA [Suspect]
     Indication: NEURALGIA
     Dosage: 150 mg, 2x/day
     Route: 048
     Dates: start: 201202, end: 201203
  3. LYRICA [Suspect]
     Dosage: 300 mg, 2x/day
     Route: 048
     Dates: start: 201203, end: 201208
  4. LYRICA [Suspect]
     Dosage: 300 mg, 3x/day
     Route: 048
     Dates: start: 201208
  5. NORTRIPTYLINE [Concomitant]
     Dosage: 10 mg, 3x/day

REACTIONS (6)
  - Weight increased [Not Recovered/Not Resolved]
  - Pain [Recovering/Resolving]
  - Incorrect dose administered [Unknown]
  - Discomfort [Not Recovered/Not Resolved]
  - Platelet production decreased [Unknown]
  - Weight fluctuation [Not Recovered/Not Resolved]
